FAERS Safety Report 10583991 (Version 1)
Quarter: 2014Q4

REPORT INFORMATION
  Report Type: Spontaneous
  Country: US (occurrence: None)
  Receive Date: 20141113
  Receipt Date: 20141113
  Transmission Date: 20150529
  Serious: Yes (Life-Threatening, Hospitalization, Disabling)
  Sender: FDA-Public Use
  Company Number: None

PATIENT
  Age: 26 Year
  Sex: Female
  Weight: 60 kg

DRUGS (1)
  1. PRISTIQ EXTENDED RELEASE [Suspect]
     Active Substance: DESVENLAFAXINE SUCCINATE
     Dosage: ONCE DAILY BY MOUTH
     Route: 048

REACTIONS (7)
  - Nausea [None]
  - Headache [None]
  - Fatigue [None]
  - Depression [None]
  - Vertigo [None]
  - Vomiting [None]
  - Suicidal ideation [None]

NARRATIVE: CASE EVENT DATE: 20141110
